FAERS Safety Report 15550458 (Version 2)
Quarter: 2018Q4

REPORT INFORMATION
  Report Type: Spontaneous
  Country: JP (occurrence: JP)
  Receive Date: 20181025
  Receipt Date: 20181031
  Transmission Date: 20190205
  Serious: Yes (Hospitalization, Other)
  Sender: FDA-Public Use
  Company Number: JP-SUCAMPO PHARMACEUTICALS INC.-SPI201800936

PATIENT
  Age: 86 Year
  Sex: Female

DRUGS (16)
  1. BAYASPIRIN [Concomitant]
     Active Substance: ASPIRIN
     Dosage: 1 DF, QD
  2. TELMISARTAN. [Concomitant]
     Active Substance: TELMISARTAN
     Dosage: 1 DF, QD
  3. MARZULENE ES                       /01184501/ [Concomitant]
     Dosage: 1 DF, BID
  4. SIGMART [Concomitant]
     Active Substance: NICORANDIL
     Dosage: 1 DF, TID
  5. LASIX [Concomitant]
     Active Substance: FUROSEMIDE
     Dosage: 1 DF, QD
  6. ROHYPNOL 1 [Concomitant]
     Active Substance: FLUNITRAZEPAM
     Dosage: 0.5 DF, QD
  7. LENDORMIN D [Concomitant]
     Active Substance: BROTIZOLAM
     Dosage: 1 DF, QD
  8. AMITIZA [Suspect]
     Active Substance: LUBIPROSTONE
     Indication: CONSTIPATION
     Dosage: 24 MCG, BID
     Route: 048
     Dates: end: 20180917
  9. SENNOSIDE                          /00571902/ [Suspect]
     Active Substance: SENNOSIDES A AND B
     Indication: CONSTIPATION
     Dosage: 24 MG, QD
     Route: 048
     Dates: end: 20180915
  10. ROSUVASTATIN                       /01588602/ [Concomitant]
     Active Substance: ROSUVASTATIN CALCIUM
     Dosage: 1 DF, QD
  11. GLACTIV [Concomitant]
     Active Substance: SITAGLIPTIN
     Dosage: 0.25 DF, QD
  12. LANSOPRAZOLE. [Concomitant]
     Active Substance: LANSOPRAZOLE
     Dosage: 1 DF, QD
  13. AMLODIPINE                         /00972402/ [Concomitant]
     Active Substance: AMLODIPINE BESYLATE
     Dosage: 1 DF, QD
  14. FERROMIA [Concomitant]
     Active Substance: SODIUM FERROUS CITRATE
     Dosage: 1 DF, BID
  15. BIO-THREE [Concomitant]
     Active Substance: HERBALS
     Dosage: 1 DF, TID
  16. MEILAX [Concomitant]
     Active Substance: ETHYL LOFLAZEPATE
     Dosage: 0.5 DF, QD

REACTIONS (3)
  - Enteritis infectious [Unknown]
  - Diarrhoea [Recovered/Resolved]
  - Vomiting [Unknown]

NARRATIVE: CASE EVENT DATE: 20180916
